FAERS Safety Report 25096882 (Version 4)
Quarter: 2025Q3

REPORT INFORMATION
  Report Type: Spontaneous
  Country: EU (occurrence: CO)
  Receive Date: 20250319
  Receipt Date: 20250904
  Transmission Date: 20251020
  Serious: Yes (Hospitalization)
  Sender: MERCK SHARP & DOHME LLC
  Company Number: EU-SANDOZ-SDZ2025NL013093

PATIENT
  Sex: Female

DRUGS (7)
  1. SITAGLIPTIN [Suspect]
     Active Substance: SITAGLIPTIN
     Route: 048
     Dates: start: 202107
  2. AMITRIPTYLINE [Concomitant]
     Active Substance: AMITRIPTYLINE
  3. GLICLAZIDE [Concomitant]
     Active Substance: GLICLAZIDE
  4. LOPERAMIDE [Concomitant]
     Active Substance: LOPERAMIDE
  5. ALENDRONIC ACID [Concomitant]
     Active Substance: ALENDRONIC ACID
  6. SEMAGLUTIDE [Concomitant]
     Active Substance: SEMAGLUTIDE
     Indication: Product used for unknown indication
     Route: 065
  7. CHOLECALCIFEROL [Concomitant]
     Active Substance: CHOLECALCIFEROL
     Indication: Product used for unknown indication
     Route: 065
     Dates: start: 202107

REACTIONS (2)
  - Inflammatory bowel disease [Recovering/Resolving]
  - Colitis [Recovered/Resolved]

NARRATIVE: CASE EVENT DATE: 20230101
